FAERS Safety Report 7669974-X (Version None)
Quarter: 2011Q3

REPORT INFORMATION
  Report Type: 
  Country: None (occurrence: None)
  Receive Date: 20110808
  Receipt Date: 20110801
  Transmission Date: 20111222
  Serious: Yes (Other)
  Sender: FDA-Public Use
  Company Number: PHHY2011AT69884

PATIENT
  Sex: Male

DRUGS (2)
  1. METHOTREXATE [Suspect]
     Dosage: UNK UKN, UNK
     Route: 048
     Dates: start: 20101001
  2. FOLSAN [Concomitant]

REACTIONS (3)
  - GASTRIC ULCER [None]
  - IMPAIRED HEALING [None]
  - GASTROINTESTINAL DISORDER [None]
